FAERS Safety Report 10359424 (Version 2)
Quarter: 2014Q3

REPORT INFORMATION
  Report Type: Spontaneous
  Country: US (occurrence: US)
  Receive Date: 20140804
  Receipt Date: 20140804
  Transmission Date: 20150326
  Serious: No
  Sender: FDA-Public Use
  Company Number: US-BEH-2013038000

PATIENT
  Sex: Female
  Weight: 94 kg

DRUGS (19)
  1. FISH OIL [Concomitant]
     Active Substance: FISH OIL
  2. ACETAMINOPHEN. [Concomitant]
     Active Substance: ACETAMINOPHEN
  3. SOLU-MEDROL [Concomitant]
     Active Substance: METHYLPREDNISOLONE SODIUM SUCCINATE
  4. IV [Suspect]
     Active Substance: UNSPECIFIED INGREDIENT
     Indication: HYPOGAMMAGLOBULINAEMIA
     Route: 058
  5. CELEBREX [Concomitant]
     Active Substance: CELECOXIB
  6. SYMBICORT [Concomitant]
     Active Substance: BUDESONIDE\FORMOTEROL FUMARATE DIHYDRATE
  7. LORTAB [Concomitant]
     Active Substance: ACETAMINOPHEN\HYDROCODONE BITARTRATE
  8. VANCOMYCIN [Concomitant]
     Active Substance: VANCOMYCIN
  9. METFORMIN HCL [Concomitant]
     Active Substance: METFORMIN HYDROCHLORIDE
  10. CITRACAL D [Concomitant]
  11. EPIPEN [Concomitant]
     Active Substance: EPINEPHRINE
  12. LEVAQUIN [Concomitant]
     Active Substance: LEVOFLOXACIN
  13. SINGULAIR [Concomitant]
     Active Substance: MONTELUKAST SODIUM
  14. CYTOMEL [Concomitant]
     Active Substance: LIOTHYRONINE SODIUM
  15. IV [Suspect]
     Active Substance: UNSPECIFIED INGREDIENT
     Route: 058
  16. DIPHENHYDRAMINE [Concomitant]
     Active Substance: DIPHENHYDRAMINE
  17. SYNTHROID [Concomitant]
     Active Substance: LEVOTHYROXINE SODIUM
  18. ALBUTEROL SULFATE HFA [Concomitant]
  19. ZITHROMAX [Concomitant]
     Active Substance: AZITHROMYCIN DIHYDRATE

REACTIONS (3)
  - Fatigue [Unknown]
  - Infusion site pain [Unknown]
  - Lethargy [Unknown]
